FAERS Safety Report 7980679-8 (Version None)
Quarter: 2011Q4

REPORT INFORMATION
  Report Type: 
  Country: None (occurrence: None)
  Receive Date: 20111214
  Receipt Date: 20111201
  Transmission Date: 20120403
  Serious: Yes (Other)
  Sender: FDA-Public Use
  Company Number: US-WATSON-2011-20789

PATIENT
  Sex: Female

DRUGS (1)
  1. MONODOX [Suspect]
     Indication: ACNE
     Dosage: 75 MG, BID
     Route: 048
     Dates: start: 20110601, end: 20111025

REACTIONS (1)
  - CONVULSION [None]
